FAERS Safety Report 5702646-7 (Version None)
Quarter: 2008Q2

REPORT INFORMATION
  Report Type: 
  Country: None (occurrence: None)
  Receive Date: 20080411
  Receipt Date: 20080331
  Transmission Date: 20081010
  Serious: Yes (Other)
  Sender: FDA-Public Use
  Company Number: US-BAYER-200711477BCC

PATIENT
  Age: 70 Year
  Sex: Female
  Weight: 104 kg

DRUGS (18)
  1. ALEVE [Suspect]
     Indication: PAIN
     Dosage: UNIT DOSE: 220 MG
     Route: 048
     Dates: start: 20061101
  2. ALEVE [Suspect]
     Dosage: UNIT DOSE: 220 MG
     Route: 048
     Dates: start: 20061101
  3. ALEVE [Suspect]
     Dosage: TOTAL DAILY DOSE: 880 MG  UNIT DOSE: 220 MG
     Route: 048
     Dates: end: 20070424
  4. ZELNORM [Suspect]
  5. ZELNORM [Suspect]
  6. PREVACID [Concomitant]
     Dosage: TOTAL DAILY DOSE: 60 MG  UNIT DOSE: 30 MG
     Route: 048
  7. DIOVAN [Concomitant]
     Route: 048
  8. DONNATAL [Concomitant]
  9. AVANDAMET [Concomitant]
     Dates: end: 20070522
  10. GLIPIZIDE [Concomitant]
  11. ZYRTEC [Concomitant]
  12. ZOCOR [Concomitant]
  13. GLIMEPIRIDE [Concomitant]
     Route: 048
  14. JANUVIA [Concomitant]
     Route: 048
  15. BYETTA [Concomitant]
     Dosage: TOTAL DAILY DOSE: 20 ?G
  16. METFORMIN HCL [Concomitant]
     Dosage: TOTAL DAILY DOSE: 450 MG  UNIT DOSE: 150 MG
     Route: 048
  17. GLYBURIDE [Concomitant]
     Dosage: AS USED: 12/9 MG  UNIT DOSE: 3 MG
     Route: 048
  18. AVANDIA [Concomitant]

REACTIONS (13)
  - ANGIOEDEMA [None]
  - BLOOD GLUCOSE INCREASED [None]
  - CHILLS [None]
  - DYSPNOEA [None]
  - ERYTHEMA [None]
  - EYE SWELLING [None]
  - FEELING HOT [None]
  - HYPERSENSITIVITY [None]
  - PHARYNGOLARYNGEAL PAIN [None]
  - PRURITUS [None]
  - STOMACH DISCOMFORT [None]
  - SWELLING FACE [None]
  - SWOLLEN TONGUE [None]
